FAERS Safety Report 14304856 (Version 1)
Quarter: 2017Q4

REPORT INFORMATION
  Report Type: Spontaneous
  Country: PT (occurrence: PT)
  Receive Date: 20171219
  Receipt Date: 20171219
  Transmission Date: 20180321
  Serious: Yes (Other)
  Sender: FDA-Public Use
  Company Number: PT-OTSUKA-DJ20103588

PATIENT

DRUGS (1)
  1. OPC-14597 [Suspect]
     Active Substance: CILOSTAZOL
     Route: 030

REACTIONS (1)
  - Hepatotoxicity [Recovered/Resolved]
